FAERS Safety Report 6667593-5 (Version None)
Quarter: 2010Q2

REPORT INFORMATION
  Report Type: 
  Country: None (occurrence: None)
  Receive Date: 20100405
  Receipt Date: 20100326
  Transmission Date: 20101027
  Serious: Yes (Hospitalization)
  Sender: FDA-Public Use
  Company Number: NL-ELI_LILLY_AND_COMPANY-NL201003000465

PATIENT
  Sex: Male

DRUGS (1)
  1. ZYPADHERA [Suspect]
     Indication: MENTAL DISORDER
     Dosage: 210 MG, UNKNOWN
     Route: 030
     Dates: start: 20100224

REACTIONS (10)
  - COLD SWEAT [None]
  - DIZZINESS [None]
  - HEAD INJURY [None]
  - HEADACHE [None]
  - HYPOTENSION [None]
  - INJECTION SITE HAEMORRHAGE [None]
  - NAUSEA [None]
  - PALLOR [None]
  - SEDATION [None]
  - SYNCOPE [None]
